FAERS Safety Report 10172632 (Version 2)
Quarter: 2014Q2

REPORT INFORMATION
  Report Type: Report from Study
  Country: US (occurrence: US)
  Receive Date: 20140515
  Receipt Date: 20140609
  Transmission Date: 20141212
  Serious: Yes (Hospitalization)
  Sender: FDA-Public Use
  Company Number: US-ABBVIE-14P-163-1236821-00

PATIENT
  Age: 63 Year
  Sex: Female

DRUGS (6)
  1. HUMIRA [Suspect]
     Indication: COLITIS ULCERATIVE
     Dates: start: 201404
  2. LIALDA [Concomitant]
     Indication: COLITIS ULCERATIVE
  3. NEXIUM [Concomitant]
     Indication: GASTROOESOPHAGEAL REFLUX DISEASE
  4. NEXIUM [Concomitant]
     Indication: HERNIA
  5. CARDIZEM [Concomitant]
     Indication: HEART RATE
  6. CARDIZEM [Concomitant]
     Indication: CARDIAC PACEMAKER INSERTION

REACTIONS (5)
  - Hyperhidrosis [Recovered/Resolved]
  - Heart rate increased [Recovered/Resolved]
  - Injection site warmth [Recovered/Resolved]
  - Injection site urticaria [Recovered/Resolved]
  - Injection site swelling [Recovered/Resolved]
